FAERS Safety Report 8417891-X (Version None)
Quarter: 2012Q2

REPORT INFORMATION
  Report Type: 
  Country: None (occurrence: None)
  Receive Date: 20120607
  Receipt Date: 20120531
  Transmission Date: 20120825
  Serious: No
  Sender: FDA-Public Use
  Company Number: US-PFIZER INC-2012070682

PATIENT
  Sex: Female

DRUGS (3)
  1. LO/OVRAL-28 [Suspect]
     Indication: CONTRACEPTION
     Dosage: 0.3MG/0.03MG
  2. OMEPRAZOLE [Concomitant]
  3. IRON [Concomitant]

REACTIONS (3)
  - DRUG INEFFECTIVE [None]
  - UNINTENDED PREGNANCY [None]
  - PRODUCT QUALITY ISSUE [None]
